FAERS Safety Report 13070718 (Version 2)
Quarter: 2017Q2

REPORT INFORMATION
  Report Type: Spontaneous
  Country: US (occurrence: US)
  Receive Date: 20161229
  Receipt Date: 20170504
  Transmission Date: 20170830
  Serious: Yes (Other)
  Sender: FDA-Public Use
  Company Number: US-SUN PHARMACEUTICAL INDUSTRIES LTD-2016US-125332

PATIENT
  Age: 14 Year
  Sex: Female

DRUGS (9)
  1. CLONAZEPAM. [Concomitant]
     Active Substance: CLONAZEPAM
     Indication: ANXIETY
     Dosage: 0.25 MG IN THE MORNING AND 0.125 MG AT
     Route: 065
  2. LITHIUM. [Suspect]
     Active Substance: LITHIUM
     Indication: HYPOMANIA
     Dosage: 300 MG, BID
     Route: 065
  3. FLUOXETINE [Concomitant]
     Active Substance: FLUOXETINE HYDROCHLORIDE
     Indication: POST-TRAUMATIC STRESS DISORDER
     Dosage: 10 MG, DAILY
  4. PRAZOSIN. [Concomitant]
     Active Substance: PRAZOSIN
     Indication: NIGHTMARE
     Dosage: INCREASED TO 3MG AT BEDTIME AND A MORNING DOSE OF 1MG WAS ADDED
     Route: 065
  5. LITHIUM. [Suspect]
     Active Substance: LITHIUM
     Indication: HYPOMANIA
     Dosage: 750 MG, DAILY
     Route: 065
  6. FLUOXETINE [Concomitant]
     Active Substance: FLUOXETINE HYDROCHLORIDE
     Dosage: 40 MG, DAILY
  7. LITHIUM. [Suspect]
     Active Substance: LITHIUM
     Indication: HYPOMANIA
     Dosage: 900 MG, DAILY
     Route: 065
  8. LEVOTHYROXINE. [Concomitant]
     Active Substance: LEVOTHYROXINE
     Indication: HYPOTHYROIDISM
     Dosage: UNK
     Route: 065
  9. LEVOMETHYLFOLATE [Concomitant]
     Indication: PRODUCT USED FOR UNKNOWN INDICATION
     Dosage: UNK
     Route: 065

REACTIONS (2)
  - Autoimmune thyroiditis [Unknown]
  - Diarrhoea [Recovered/Resolved]
